FAERS Safety Report 4314779-0 (Version None)
Quarter: 2004Q1

REPORT INFORMATION
  Report Type: 
  Country: None (occurrence: None)
  Receive Date: 20040308
  Receipt Date: 20040227
  Transmission Date: 20041129
  Serious: No
  Sender: FDA-Public Use
  Company Number: 2003GB02697

PATIENT
  Age: 70 Year
  Sex: Female

DRUGS (4)
  1. NEXIUM [Suspect]
     Indication: DYSPEPSIA
     Dosage: 40 MG DAILY PO
     Route: 048
     Dates: start: 20030613, end: 20030916
  2. ORUVAIL [Concomitant]
  3. DYAZIDE [Concomitant]
  4. SERETIDE [Concomitant]

REACTIONS (1)
  - ALOPECIA [None]
